FAERS Safety Report 14027582 (Version 2)
Quarter: 2017Q4

REPORT INFORMATION
  Report Type: Spontaneous
  Country: US (occurrence: US)
  Receive Date: 20170929
  Receipt Date: 20171116
  Transmission Date: 20180321
  Serious: Yes (Hospitalization, Other)
  Sender: FDA-Public Use
  Company Number: US-PFIZER INC-2017416158

PATIENT
  Age: 64 Year
  Sex: Male

DRUGS (3)
  1. CHANTIX [Suspect]
     Active Substance: VARENICLINE TARTRATE
     Indication: SMOKING CESSATION THERAPY
     Dosage: [PAK 0.5 MG?11 AND 1 MG?42]
     Route: 048
     Dates: start: 20170912, end: 20170920
  2. ASPIRIN. [Suspect]
     Active Substance: ASPIRIN
     Dosage: UNK
  3. IMITREX [Suspect]
     Active Substance: SUMATRIPTAN SUCCINATE
     Dosage: UNK

REACTIONS (6)
  - Emotional disorder [Recovering/Resolving]
  - Cognitive disorder [Recovering/Resolving]
  - Psychotic disorder [Unknown]
  - Confusional state [Not Recovered/Not Resolved]
  - Paranoia [Unknown]
  - Major depression [Unknown]

NARRATIVE: CASE EVENT DATE: 201709
